FAERS Safety Report 10223467 (Version 2)
Quarter: 2014Q2

REPORT INFORMATION
  Report Type: Spontaneous
  Country: US (occurrence: US)
  Receive Date: 20140609
  Receipt Date: 20140609
  Transmission Date: 20141212
  Serious: No
  Sender: FDA-Public Use
  Company Number: US-DRREDDYS-USA/USA/13/0034580

PATIENT
  Age: 36 Year
  Sex: Male

DRUGS (4)
  1. FEXOFENADINE HCL  OTC [Suspect]
     Indication: ALLERGY TO ANIMAL
     Route: 048
     Dates: start: 20130909
  2. FEXOFENADINE HCL  OTC [Suspect]
     Indication: EYE PRURITUS
  3. FEXOFENADINE HCL  OTC [Suspect]
     Indication: RHINORRHOEA
  4. FEXOFENADINE HCL  OTC [Suspect]
     Indication: THROAT IRRITATION

REACTIONS (2)
  - Drug ineffective [Recovered/Resolved]
  - Product quality issue [Unknown]
